FAERS Safety Report 9813947 (Version 2)
Quarter: 2014Q1

REPORT INFORMATION
  Report Type: Spontaneous
  Country: US (occurrence: US)
  Receive Date: 20140113
  Receipt Date: 20140113
  Transmission Date: 20141002
  Serious: No
  Sender: FDA-Public Use
  Company Number: US-GILEAD-2010-0033056

PATIENT
  Age: 60 Year
  Sex: Male

DRUGS (5)
  1. TRUVADA [Suspect]
  2. COMBIVIR [Concomitant]
     Indication: HIV INFECTION
  3. IBUPROFEN [Concomitant]
  4. METOPROLOL [Concomitant]
  5. NORVASC [Concomitant]
     Indication: HYPERTENSION

REACTIONS (1)
  - Blood creatinine increased [Unknown]
